FAERS Safety Report 6146507-0 (Version None)
Quarter: 2009Q2

REPORT INFORMATION
  Report Type: 
  Country: None (occurrence: None)
  Receive Date: 20090403
  Receipt Date: 20090403
  Transmission Date: 20091009
  Serious: No
  Sender: FDA-Public Use
  Company Number: None

PATIENT
  Age: 64 Year
  Sex: Male

DRUGS (1)
  1. VARICELLA-ZOSTER IMMUNE GLOBULIN (HUMAN) [Suspect]
     Dosage: 1 ML ONCE IM
     Route: 030
     Dates: start: 20090331

REACTIONS (2)
  - PRURITUS [None]
  - URTICARIA [None]
